FAERS Safety Report 9038993 (Version 1)
Quarter: 2013Q1

REPORT INFORMATION
  Report Type: Report from Study
  Country: US (occurrence: US)
  Receive Date: 20130129
  Receipt Date: 20130129
  Transmission Date: 20140127
  Serious: No
  Sender: FDA-Public Use
  Company Number: US-ABBOTT-12P-163-0930503-00

PATIENT
  Age: 44 Year
  Sex: Female

DRUGS (12)
  1. HUMIRA 40 MG/0.8 ML PEN [Suspect]
     Indication: CROHN^S DISEASE
     Dosage: LOADING DOSE
     Dates: start: 20120327, end: 20120327
  2. HUMIRA 40 MG/0.8 ML PEN [Suspect]
     Dosage: LOADING DOSE
     Dates: start: 20120410, end: 20120410
  3. HUMIRA 40 MG/0.8 ML PEN [Suspect]
     Dates: start: 20120424
  4. COPAXONE [Concomitant]
     Indication: MULTIPLE SCLEROSIS
     Dosage: DAILY
  5. MESALAMINE [Concomitant]
     Indication: CROHN^S DISEASE
  6. PREDNISONE [Concomitant]
     Indication: CROHN^S DISEASE
     Dosage: 10MG DAILY
  7. PAROXETINE [Concomitant]
     Indication: DEPRESSION
  8. IBUPROFEN [Concomitant]
     Indication: PAIN
  9. OXYCODONE [Concomitant]
     Indication: CROHN^S DISEASE
     Dosage: 5/325 1-2TABS EVERY 4-6HOURS
  10. OXYCODONE [Concomitant]
     Indication: PAIN
  11. ODANESTERON [Concomitant]
     Indication: NAUSEA
  12. ZOLPIDEM [Concomitant]
     Indication: INSOMNIA
     Dosage: AT BEDTIME AS NEEDED

REACTIONS (1)
  - Hypoaesthesia [Not Recovered/Not Resolved]
